FAERS Safety Report 6816369-4 (Version None)
Quarter: 2010Q3

REPORT INFORMATION
  Report Type: 
  Country: None (occurrence: None)
  Receive Date: 20100705
  Receipt Date: 20100622
  Transmission Date: 20110219
  Serious: Yes (Hospitalization, Other)
  Sender: FDA-Public Use
  Company Number: PHHY2010CA38797

PATIENT

DRUGS (2)
  1. ALISKIREN ALI+ [Suspect]
     Dosage: UNK
     Dates: end: 20100517
  2. CALCIUM CHANNEL BLOCKERS [Concomitant]

REACTIONS (3)
  - ATRIAL FIBRILLATION [None]
  - HYPERTENSIVE CRISIS [None]
  - MICROALBUMINURIA [None]
